FAERS Safety Report 15463173 (Version 1)
Quarter: 2018Q4

REPORT INFORMATION
  Report Type: Spontaneous
  Country: US (occurrence: US)
  Receive Date: 20181004
  Receipt Date: 20181004
  Transmission Date: 20190204
  Serious: No
  Sender: FDA-Public Use
  Company Number: US-UNITED THERAPEUTICS-UNT-2018-014765

PATIENT
  Age: 81 Year
  Sex: Male
  Weight: 66.21 kg

DRUGS (2)
  1. TYVASO [Suspect]
     Active Substance: TREPROSTINIL
     Dosage: 18 ?G, UNK
  2. TYVASO [Suspect]
     Active Substance: TREPROSTINIL
     Indication: PULMONARY ARTERIAL HYPERTENSION
     Dosage: 18-54 MICROGRAMS, QID
     Dates: start: 20180906

REACTIONS (5)
  - Oxygen saturation decreased [Unknown]
  - Cough [Unknown]
  - Asthenia [Unknown]
  - Tremor [Unknown]
  - Wheezing [Unknown]

NARRATIVE: CASE EVENT DATE: 201809
